FAERS Safety Report 5669170-1 (Version None)
Quarter: 2008Q1

REPORT INFORMATION
  Report Type: 
  Country: None (occurrence: None)
  Receive Date: 20080317
  Receipt Date: 20080317
  Transmission Date: 20080703
  Serious: Yes (Life-Threatening, Hospitalization, Disabling, Other)
  Sender: FDA-Public Use
  Company Number: None

PATIENT
  Age: 76 Year
  Sex: Male
  Weight: 95.2554 kg

DRUGS (2)
  1. HEPARIN [Suspect]
     Indication: CARDIAC OPERATION
     Dates: start: 20070327, end: 20070803
  2. HEPARIN [Suspect]
     Indication: CATHETERISATION CARDIAC
     Dates: start: 20070327, end: 20070803

REACTIONS (2)
  - CARDIAC ARREST [None]
  - DRUG HYPERSENSITIVITY [None]
